FAERS Safety Report 6449179-0 (Version None)
Quarter: 2009Q4

REPORT INFORMATION
  Report Type: 
  Country: None (occurrence: None)
  Receive Date: 20091120
  Receipt Date: 20091111
  Transmission Date: 20100525
  Serious: Yes (Other)
  Sender: FDA-Public Use
  Company Number: BR-ABBOTT-09P-020-0608076-00

PATIENT
  Sex: Female
  Weight: 130 kg

DRUGS (8)
  1. HUMIRA [Suspect]
     Indication: ANKYLOSING SPONDYLITIS
     Route: 058
     Dates: start: 20090401, end: 20091025
  2. VASOPRIL PLUS [Concomitant]
     Indication: HYPERTENSION
     Route: 048
     Dates: start: 20050101
  3. MANIVASC [Concomitant]
     Indication: HYPERTENSION
     Route: 048
     Dates: start: 20060101
  4. ENALAPRIL MALEATE [Concomitant]
     Indication: HYPERTENSION
     Route: 048
     Dates: start: 20060101
  5. METFORMIN HCL [Concomitant]
     Indication: DIABETES MELLITUS
     Route: 048
     Dates: start: 20070101
  6. DOLAMIN [Concomitant]
     Indication: FIBROMYALGIA
     Route: 048
     Dates: start: 20030101
  7. FLUOXETINE [Concomitant]
     Indication: FIBROMYALGIA
     Route: 048
     Dates: start: 20030101
  8. SULFASALAZINE [Concomitant]
     Indication: ANKYLOSING SPONDYLITIS
     Route: 048
     Dates: start: 19980101

REACTIONS (2)
  - BLOOD CHOLESTEROL INCREASED [None]
  - CHONDROPATHY [None]
